FAERS Safety Report 11940011 (Version 2)
Quarter: 2016Q1

REPORT INFORMATION
  Report Type: Spontaneous
  Country: US (occurrence: US)
  Receive Date: 20160122
  Receipt Date: 20160303
  Transmission Date: 20160526
  Serious: Yes (Other)
  Sender: FDA-Public Use
  Company Number: US-PFIZER INC-2016026049

PATIENT
  Age: 59 Year
  Sex: Female
  Weight: 98 kg

DRUGS (10)
  1. MICRO-K [Concomitant]
     Active Substance: POTASSIUM CHLORIDE
     Dosage: 20 MEQ, 2X/DAY
     Route: 048
  2. COMPAZINE [Concomitant]
     Active Substance: PROCHLORPERAZINE MALEATE
     Indication: NAUSEA
     Dosage: 10 MG, 4X/DAY (EVERY 6 HOURS)
     Route: 048
  3. CHOLECALCIFEROL [Concomitant]
     Active Substance: CHOLECALCIFEROL
     Dosage: 1000 IU, 2X/DAY
     Route: 048
  4. DAPSONE. [Concomitant]
     Active Substance: DAPSONE
     Dosage: 100 MG, 1X/DAY
     Route: 048
  5. HYDRODIURIL [Concomitant]
     Active Substance: HYDROCHLOROTHIAZIDE
     Indication: PERIPHERAL SWELLING
     Dosage: 25 MG, 1X/DAY
     Route: 048
  6. ZOVIRAX [Concomitant]
     Active Substance: ACYCLOVIR
     Dosage: 400 MG, 2X/DAY
     Route: 048
  7. NORVASC [Concomitant]
     Active Substance: AMLODIPINE BESYLATE
     Dosage: 5 MG, DAILY
     Route: 048
  8. PROTONIX [Concomitant]
     Active Substance: PANTOPRAZOLE SODIUM
     Dosage: 40 MG, 2X/DAY (EVERY 12 HOURS)
     Route: 048
  9. NEURONTIN [Suspect]
     Active Substance: GABAPENTIN
     Indication: NEUROPATHY PERIPHERAL
     Dosage: 600 MG, 2X/DAY
     Route: 048
  10. MAGNESIUM OXIDE. [Concomitant]
     Active Substance: MAGNESIUM OXIDE
     Dosage: 400 MG, 2X/DAY

REACTIONS (14)
  - Pollakiuria [Unknown]
  - Visual impairment [Unknown]
  - Haematuria [Recovered/Resolved]
  - Fatigue [Unknown]
  - Dry skin [Unknown]
  - Rash [Unknown]
  - Rhinorrhoea [Unknown]
  - Drug ineffective for unapproved indication [Unknown]
  - Retinal vein occlusion [Unknown]
  - Haemorrhage urinary tract [Unknown]
  - Condition aggravated [Unknown]
  - Nocturia [Unknown]
  - Peripheral swelling [Unknown]
  - Micturition urgency [Unknown]
